FAERS Safety Report 5182700-1 (Version None)
Quarter: 2006Q4

REPORT INFORMATION
  Report Type: 
  Country: None (occurrence: None)
  Receive Date: 20061220
  Receipt Date: 20041123
  Transmission Date: 20070319
  Serious: No
  Sender: FDA-Public Use
  Company Number: US-GLAXOSMITHKLINE-A0534958A

PATIENT
  Age: 55 Year
  Sex: Female

DRUGS (3)
  1. NICODERM CQ [Suspect]
     Indication: SMOKING CESSATION THERAPY
     Dosage: 7MG UNKNOWN
     Route: 062
  2. COMMIT [Suspect]
     Indication: SMOKING CESSATION THERAPY
     Route: 065
  3. NICORETTE [Suspect]
     Indication: SMOKING CESSATION THERAPY
     Dosage: 2MG FOUR TIMES PER DAY
     Route: 065

REACTIONS (5)
  - DRUG INEFFECTIVE [None]
  - GINGIVAL PAIN [None]
  - GLOSSODYNIA [None]
  - NICOTINE DEPENDENCE [None]
  - STOMATITIS [None]
